FAERS Safety Report 13827607 (Version 1)
Quarter: 2017Q3

REPORT INFORMATION
  Report Type: Spontaneous
  Country: US (occurrence: US)
  Receive Date: 20170802
  Receipt Date: 20170802
  Transmission Date: 20171127
  Serious: No
  Sender: FDA-Public Use
  Company Number: US-ELI_LILLY_AND_COMPANY-US201707006338

PATIENT
  Age: 54 Year
  Sex: Female

DRUGS (4)
  1. FORTEO [Suspect]
     Active Substance: TERIPARATIDE
     Dosage: UNK, UNKNOWN
     Route: 065
  2. FORTEO [Suspect]
     Active Substance: TERIPARATIDE
     Dosage: UNK
     Route: 065
  3. FORTEO [Suspect]
     Active Substance: TERIPARATIDE
     Indication: OSTEOPOROSIS
     Dosage: UNK, UNKNOWN
     Route: 065
     Dates: end: 20170710
  4. FORTEO [Suspect]
     Active Substance: TERIPARATIDE
     Dosage: UNK
     Route: 065

REACTIONS (2)
  - Ankle fracture [Recovering/Resolving]
  - Arthralgia [Recovering/Resolving]

NARRATIVE: CASE EVENT DATE: 20170711
